FAERS Safety Report 19066758 (Version 1)
Quarter: 2021Q1

REPORT INFORMATION
  Report Type: Spontaneous
  Country: US (occurrence: US)
  Receive Date: 20210329
  Receipt Date: 20210329
  Transmission Date: 20210420
  Serious: No
  Sender: FDA-Public Use
  Company Number: US-ELI_LILLY_AND_COMPANY-US202103006561

PATIENT
  Sex: Female

DRUGS (2)
  1. FORTEO [Suspect]
     Active Substance: TERIPARATIDE
     Indication: PRODUCT USED FOR UNKNOWN INDICATION
     Dosage: 20 UG, UNKNOWN
     Route: 058
  2. PRALUENT [Concomitant]
     Active Substance: ALIROCUMAB
     Indication: BLOOD CHOLESTEROL

REACTIONS (6)
  - Peripheral swelling [Unknown]
  - Product dose omission issue [Unknown]
  - Gout [Unknown]
  - Memory impairment [Unknown]
  - Joint swelling [Unknown]
  - Pain [Unknown]
